FAERS Safety Report 9744337 (Version 2)
Quarter: 2013Q4

REPORT INFORMATION
  Report Type: Spontaneous
  Country: US (occurrence: US)
  Receive Date: 20131210
  Receipt Date: 20131216
  Transmission Date: 20140711
  Serious: Yes (Other)
  Sender: FDA-Public Use
  Company Number: CHPA2013US018149

PATIENT
  Age: 63 Year
  Sex: Female

DRUGS (1)
  1. VOLTAREN GEL [Suspect]
     Dosage: 4 G, QID OR LESS
     Route: 065
     Dates: start: 2008, end: 20131208

REACTIONS (4)
  - Corneal degeneration [Not Recovered/Not Resolved]
  - Concomitant disease aggravated [Not Recovered/Not Resolved]
  - Underdose [Unknown]
  - Drug administered at inappropriate site [Unknown]
